FAERS Safety Report 10335075 (Version 3)
Quarter: 2015Q1

REPORT INFORMATION
  Report Type: Spontaneous
  Country: US (occurrence: US)
  Receive Date: 20140723
  Receipt Date: 20150119
  Transmission Date: 20150720
  Serious: No
  Sender: FDA-Public Use
  Company Number: US-UNITED THERAPEUTICS-UTC-047702

PATIENT
  Age: 79 Year
  Sex: Female
  Weight: 83.9 kg

DRUGS (4)
  1. LETAIRIS [Concomitant]
     Active Substance: AMBRISENTAN
  2. REMODULIN [Suspect]
     Active Substance: TREPROSTINIL
     Dosage: 2.5 MG, UNK
     Dates: start: 20140416
  3. REMODULIN [Suspect]
     Active Substance: TREPROSTINIL
     Dosage: .004 UG/KG/MIN
     Route: 058
     Dates: start: 20140318
  4. WARFARIN [Concomitant]
     Active Substance: WARFARIN

REACTIONS (5)
  - Drug ineffective [Unknown]
  - Diarrhoea [Unknown]
  - Seasonal allergy [Unknown]
  - Dyspnoea [Unknown]
  - Infusion site pain [Unknown]

NARRATIVE: CASE EVENT DATE: 20140415
